FAERS Safety Report 5933297-7 (Version None)
Quarter: 2008Q4

REPORT INFORMATION
  Report Type: 
  Country: None (occurrence: None)
  Receive Date: 20081028
  Receipt Date: 20081023
  Transmission Date: 20090506
  Serious: Yes (Hospitalization)
  Sender: FDA-Public Use
  Company Number: GB-B.I. PHARMACEUTICALS,INC./RIDGEFIELD-2008-UK-01683UK

PATIENT
  Age: 55 Year
  Sex: Female
  Weight: 75 kg

DRUGS (5)
  1. CLONIDINE [Suspect]
     Indication: MENOPAUSAL SYMPTOMS
     Dosage: 100MG
     Route: 048
  2. ALVERINE [Suspect]
     Dosage: X 3 DAILY
  3. LEVOTHYROXINE SODIUM [Concomitant]
     Indication: HYPOTHYROIDISM
     Dosage: 150MCG
  4. MEBEVERINE [Concomitant]
     Indication: IRRITABLE BOWEL SYNDROME
     Dosage: 135MG X 3 DAILY
  5. OMEPRAZOLE [Concomitant]
     Indication: GASTRITIS
     Dosage: 20MG

REACTIONS (3)
  - ABDOMINAL PAIN [None]
  - JAUNDICE [None]
  - LIVER FUNCTION TEST ABNORMAL [None]
